FAERS Safety Report 6429477-7 (Version None)
Quarter: 2009Q4

REPORT INFORMATION
  Report Type: 
  Country: None (occurrence: None)
  Receive Date: 20091105
  Receipt Date: 20090702
  Transmission Date: 20100525
  Serious: No
  Sender: FDA-Public Use
  Company Number: US-ABBOTT-09P-163-0583635-00

PATIENT
  Sex: Male
  Weight: 83.536 kg

DRUGS (3)
  1. KALETRA [Suspect]
     Indication: HIV TEST POSITIVE
     Dosage: TWICE DAILY, 2 TAB IN AM AND 2 TAB IN PM
     Route: 048
     Dates: start: 20080101
  2. TRUVADA [Concomitant]
     Indication: HIV TEST POSITIVE
     Dosage: DAILY WITH KALETRA
     Route: 048
  3. VALCYTE [Concomitant]
     Indication: EYE DISORDER
     Route: 048

REACTIONS (2)
  - INFLUENZA [None]
  - NAUSEA [None]
